FAERS Safety Report 20149616 (Version 5)
Quarter: 2022Q2

REPORT INFORMATION
  Report Type: Spontaneous
  Country: IT (occurrence: IT)
  Receive Date: 20211206
  Receipt Date: 20220526
  Transmission Date: 20220721
  Serious: Yes (Other)
  Sender: FDA-Public Use
  Company Number: IT-MINISAL02-813282

PATIENT
  Age: 63 Year
  Sex: Female

DRUGS (5)
  1. RISEDRONATE SODIUM [Suspect]
     Active Substance: RISEDRONATE SODIUM
     Indication: Osteoporosis
     Dosage: 1 DOSAGE FORM, EVERY WEEK
     Route: 048
     Dates: start: 20200402, end: 20210401
  2. DENOSUMAB [Suspect]
     Active Substance: DENOSUMAB
     Indication: Osteoporosis
     Dosage: UNK
     Route: 042
     Dates: start: 2015, end: 2020
  3. DENOSUMAB [Suspect]
     Active Substance: DENOSUMAB
     Dosage: UNK
     Route: 058
     Dates: start: 20150101, end: 20200401
  4. PROLIA [Suspect]
     Active Substance: DENOSUMAB
     Indication: Osteoporosis
     Dosage: 2 DOSAGE FORM, EVERY YEAR
     Route: 058
     Dates: start: 20150101, end: 20200401
  5. PROLIA [Suspect]
     Active Substance: DENOSUMAB
     Dosage: 2 DOSAGE FORM
     Route: 042
     Dates: start: 20150101, end: 20200401

REACTIONS (2)
  - Osteonecrosis of jaw [Recovered/Resolved]
  - Gingivitis [Unknown]

NARRATIVE: CASE EVENT DATE: 20210419
